FAERS Safety Report 5481714-1 (Version None)
Quarter: 2007Q3

REPORT INFORMATION
  Report Type: 
  Country: None (occurrence: None)
  Receive Date: 20070917
  Receipt Date: 20070124
  Transmission Date: 20080115
  Serious: Yes (Other)
  Sender: FDA-Public Use
  Company Number: S07-USA-00389-01

PATIENT
  Age: 57 Year
  Sex: Female

DRUGS (5)
  1. CELEXA [Suspect]
     Indication: ANXIETY
     Dosage: 20 MG QD PO
     Route: 048
     Dates: start: 20030523
  2. RISPERDAL [Concomitant]
  3. AGGRENOX [Concomitant]
  4. ZYRTEC [Concomitant]
  5. ZOCOR [Concomitant]

REACTIONS (1)
  - CONVULSION [None]
